FAERS Safety Report 16547338 (Version 2)
Quarter: 2021Q3

REPORT INFORMATION
  Report Type: Spontaneous
  Country: US (occurrence: US)
  Receive Date: 20190709
  Receipt Date: 20210709
  Transmission Date: 20211014
  Serious: No
  Sender: FDA-Public Use
  Company Number: US-ASTELLAS-2019US019231

PATIENT
  Sex: Female

DRUGS (3)
  1. DIAZEPAM. [Concomitant]
     Active Substance: DIAZEPAM
     Indication: PRODUCT USED FOR UNKNOWN INDICATION
     Dosage: 10 MG, AS NEEDED (STARTED THIS ABOUT THE SAME TIME SHE STARTED THE OXYCODONE)
     Route: 065
  2. OXYCODONE [Concomitant]
     Active Substance: OXYCODONE
     Indication: PAIN
     Dosage: 10/325 MG, AS NEEDED (TAKING THIS FOR ALMOST 2 YEARS)
     Route: 065
  3. MYRBETRIQ [Suspect]
     Active Substance: MIRABEGRON
     Indication: INCONTINENCE
     Route: 065

REACTIONS (1)
  - Drug ineffective [Unknown]
